FAERS Safety Report 16870394 (Version 1)
Quarter: 2019Q3

REPORT INFORMATION
  Report Type: Report from Study
  Country: CA (occurrence: CA)
  Receive Date: 20190930
  Receipt Date: 20190930
  Transmission Date: 20191005
  Serious: Yes (Other)
  Sender: FDA-Public Use
  Company Number: CA-HLSUS-2019-CA-001139

PATIENT
  Age: 62 Year
  Sex: Male
  Weight: 67 kg

DRUGS (1)
  1. CLOZARIL [Suspect]
     Active Substance: CLOZAPINE
     Route: 048
     Dates: start: 20011128

REACTIONS (3)
  - Bundle branch block left [Unknown]
  - Sinus tachycardia [Unknown]
  - Electrocardiogram QRS complex abnormal [Unknown]

NARRATIVE: CASE EVENT DATE: 20190916
